FAERS Safety Report 5991171-4 (Version None)
Quarter: 2008Q4

REPORT INFORMATION
  Report Type: 
  Country: None (occurrence: None)
  Receive Date: 20081202
  Receipt Date: 20080502
  Transmission Date: 20090506
  Serious: Yes (Other)
  Sender: FDA-Public Use
  Company Number: WAES 0805USA00689

PATIENT
  Age: 80 Year
  Sex: Female
  Weight: 102.9665 kg

DRUGS (14)
  1. FOSAMAX [Suspect]
     Indication: OSTEOPOROSIS
     Dosage: 70 MG/WKY/PO
     Route: 048
  2. FOSAMAX PLUS D [Suspect]
     Dosage: PO
     Route: 048
  3. ADVAIR DISKUS 250/50 [Concomitant]
  4. HYZAAR [Concomitant]
  5. NEXIUM [Concomitant]
  6. REQUIP [Concomitant]
  7. SINGULAIR [Concomitant]
  8. SYNTHROID [Concomitant]
  9. TYLENOL W/ CODEINE NO. 3 [Concomitant]
  10. VICODIN [Concomitant]
  11. CHONDROITIN SULFATE SODIUM (+) G [Concomitant]
  12. HYDROCHLOROTHIAZIDE [Concomitant]
  13. METHADONE HCL [Concomitant]
  14. VITAMIN D (UNSPECIFIED) [Concomitant]

REACTIONS (15)
  - ASTHMA [None]
  - BLOOD CHOLESTEROL INCREASED [None]
  - BRONCHITIS [None]
  - COCCYDYNIA [None]
  - CONTUSION [None]
  - DENTAL CARIES [None]
  - FALL [None]
  - GINGIVAL SWELLING [None]
  - GOUT [None]
  - ORAL TORUS [None]
  - OSTEOARTHRITIS [None]
  - OSTEONECROSIS [None]
  - POLYMYALGIA RHEUMATICA [None]
  - ROTATOR CUFF SYNDROME [None]
  - TOOTH FRACTURE [None]
